FAERS Safety Report 7480800-4 (Version None)
Quarter: 2011Q2

REPORT INFORMATION
  Report Type: 
  Country: None (occurrence: None)
  Receive Date: 20110516
  Receipt Date: 20110502
  Transmission Date: 20111010
  Serious: Yes (Hospitalization, Other)
  Sender: FDA-Public Use
  Company Number: US-ELI_LILLY_AND_COMPANY-US200912003583

PATIENT
  Age: 80 Year
  Sex: Female

DRUGS (2)
  1. FORTEO [Suspect]
     Dosage: 20 UG, DAILY (1/D)
  2. VESICARE [Concomitant]

REACTIONS (12)
  - FALL [None]
  - WEIGHT INCREASED [None]
  - ULCER [None]
  - LOSS OF CONSCIOUSNESS [None]
  - SENSORY DISTURBANCE [None]
  - ARTHRITIS [None]
  - HEAD INJURY [None]
  - SYNCOPE [None]
  - WEIGHT DECREASED [None]
  - ASTHENIA [None]
  - STRESS [None]
  - OEDEMA PERIPHERAL [None]
